FAERS Safety Report 12239466 (Version 1)
Quarter: 2016Q2

REPORT INFORMATION
  Report Type: Report from Study
  Country: US (occurrence: US)
  Receive Date: 20160405
  Receipt Date: 20160405
  Transmission Date: 20160815
  Serious: Yes (Hospitalization, Other)
  Sender: FDA-Public Use
  Company Number: ADR-2014-01575

PATIENT
  Age: 34 Year
  Sex: Female

DRUGS (6)
  1. DILAUDID [Suspect]
     Active Substance: HYDROMORPHONE HYDROCHLORIDE
     Dosage: 0.7998 MG/DAY
     Route: 037
     Dates: start: 20140618
  2. BUPIVACAINE. [Suspect]
     Active Substance: BUPIVACAINE
     Dosage: 14.018 MG/DAY
     Route: 037
     Dates: start: 20140815
  3. BACLOFEN. [Suspect]
     Active Substance: BACLOFEN
     Dosage: 186.63 MCG/DAY
     Route: 037
     Dates: start: 20140618
  4. HYDROMORPHONE [Suspect]
     Active Substance: HYDROMORPHONE
     Dosage: 0.7 MG/DAY
     Route: 037
     Dates: start: 20140815
  5. COMPOUNDED BACLOFEN [Suspect]
     Active Substance: BACLOFEN
     Dosage: 163.54 MCG/DAY
     Route: 037
     Dates: start: 20140815
  6. BUPIVACAINE. [Suspect]
     Active Substance: BUPIVACAINE
     Dosage: 15.997 MG/DAY
     Route: 037
     Dates: start: 20140618

REACTIONS (5)
  - Adverse drug reaction [Recovered/Resolved]
  - Lethargy [Recovered/Resolved]
  - Urinary retention [Recovered/Resolved]
  - Oedema peripheral [Recovered/Resolved]
  - Drug withdrawal syndrome [Recovered/Resolved]
